FAERS Safety Report 14333932 (Version 6)
Quarter: 2018Q2

REPORT INFORMATION
  Report Type: Spontaneous
  Country: IT (occurrence: IT)
  Receive Date: 20171228
  Receipt Date: 20180417
  Transmission Date: 20180711
  Serious: Yes (Hospitalization, Other)
  Sender: FDA-Public Use
  Company Number: IT-PFIZER INC-2017548559

PATIENT
  Age: 52 Year
  Sex: Female

DRUGS (2)
  1. QUETIAPINE. [Suspect]
     Active Substance: QUETIAPINE
     Dosage: 10 DF (10 TABLETS)
     Route: 048
     Dates: start: 20171028
  2. LORAZEPAM. [Suspect]
     Active Substance: LORAZEPAM
     Dosage: 10 DF (10 TABLETS)
     Route: 048
     Dates: start: 20171028

REACTIONS (6)
  - Hyperthermia [Unknown]
  - Musculoskeletal stiffness [Unknown]
  - Neuroleptic malignant syndrome [Unknown]
  - Drug abuse [Unknown]
  - Somnolence [Unknown]
  - Suicide attempt [Unknown]

NARRATIVE: CASE EVENT DATE: 20171028
